FAERS Safety Report 5730222-9 (Version None)
Quarter: 2008Q2

REPORT INFORMATION
  Report Type: 
  Country: None (occurrence: None)
  Receive Date: 20080507
  Receipt Date: 20080428
  Transmission Date: 20081010
  Serious: Yes (Other)
  Sender: FDA-Public Use
  Company Number: US-AMGEN-US190746

PATIENT
  Age: 51 Year
  Sex: Female

DRUGS (12)
  1. EPOGEN [Suspect]
     Indication: DIALYSIS
     Route: 065
     Dates: start: 20060628
  2. NEPHRO-CAPS [Concomitant]
     Route: 048
  3. METOPROLOL TARTRATE [Concomitant]
     Route: 048
  4. FOLIC ACID [Concomitant]
     Route: 048
  5. MAGNESIUM OXIDE [Concomitant]
     Route: 065
  6. PROTONIX [Concomitant]
     Route: 048
  7. NU-IRON [Concomitant]
     Route: 048
  8. DUONEB [Concomitant]
  9. FERROUS SULFATE TAB [Concomitant]
     Route: 048
     Dates: start: 20060828
  10. ATROVENT [Concomitant]
     Dates: start: 20060828
  11. ALBUTEROL [Concomitant]
     Dates: start: 20060828
  12. RENAL SOFT GEL [Concomitant]
     Route: 048
     Dates: start: 20060828

REACTIONS (3)
  - ANTI-ERYTHROPOIETIN ANTIBODY POSITIVE [None]
  - HAEMOCHROMATOSIS [None]
  - HAEMOGLOBIN DECREASED [None]
